FAERS Safety Report 7034571-6 (Version None)
Quarter: 2010Q4

REPORT INFORMATION
  Report Type: 
  Country: None (occurrence: None)
  Receive Date: 20101008
  Receipt Date: 20100930
  Transmission Date: 20110411
  Serious: Yes (Hospitalization, Other)
  Sender: FDA-Public Use
  Company Number: JP-SHIRE-SPV1-2010-01712

PATIENT
  Sex: Female

DRUGS (16)
  1. LANTHANUM CARBONATE [Suspect]
     Indication: HYPERPHOSPHATAEMIA
     Dosage: 750 MG TOTAL DAILY DOSE (IMMEDIATELY AFTER MEALS)
     Route: 048
     Dates: start: 20090618
  2. ASPIRIN [Suspect]
     Indication: ANGINA PECTORIS
     Dosage: 100 MG TOTAL DAILY DOSE, UNKNOWN
     Route: 048
  3. CALCIUM CARBONATE [Concomitant]
     Indication: HYPERPHOSPHATAEMIA
     Dosage: 1200 MG, UNKNOWN
     Route: 048
     Dates: end: 20090101
  4. CALCIUM CARBONATE [Concomitant]
     Dosage: 1500 MG, UNKNOWN
     Route: 048
     Dates: start: 20090806
  5. RENAGEL [Concomitant]
     Indication: HYPERPHOSPHATAEMIA
     Dosage: 750 MG, UNKNOWN
     Route: 048
     Dates: start: 20090109, end: 20090109
  6. RENAGEL [Concomitant]
     Dosage: 2250 MG, UNKNOWN
     Route: 048
     Dates: start: 20090609
  7. ONEALFA [Concomitant]
     Indication: PRODUCT USED FOR UNKNOWN INDICATION
     Dosage: .5 UG, UNKNOWN
     Route: 048
     Dates: start: 20090421
  8. SELBEX [Concomitant]
     Indication: GASTRITIS
     Dosage: 1.5 G, UNKNOWN
     Route: 048
  9. ARTIST [Concomitant]
     Indication: HYPERTENSION
     Dosage: 2.5 MG, UNKNOWN
     Route: 048
     Dates: start: 20090609
  10. NITOROL [Concomitant]
     Indication: ANGINA PECTORIS
     Dosage: 20 MG, UNKNOWN
     Route: 048
  11. DIOVAN [Concomitant]
     Indication: HYPERTENSION
     Dosage: 40 MG, UNKNOWN
     Route: 048
     Dates: start: 20090421
  12. NORVASC [Concomitant]
     Indication: HYPERTENSION
     Dosage: 2.5 MG, UNKNOWN
     Route: 048
     Dates: start: 20090512
  13. HALCION [Concomitant]
     Indication: INSOMNIA
     Dosage: .25 MG, UNKNOWN
     Route: 048
  14. EPOGIN [Concomitant]
     Indication: ANAEMIA
     Dosage: 750 IU, UNKNOWN
     Route: 042
     Dates: start: 20090616
  15. NOVOLIN 30R                        /00030505/ [Concomitant]
     Indication: DIABETES MELLITUS
     Dosage: 10 IU, UNKNOWN
     Route: 058
  16. ALFAROL [Concomitant]
     Indication: PRODUCT USED FOR UNKNOWN INDICATION
     Dosage: UNK, UNKNOWN
     Route: 048
     Dates: start: 20050913, end: 20090420

REACTIONS (2)
  - GASTROINTESTINAL HAEMORRHAGE [None]
  - NAUSEA [None]
